FAERS Safety Report 9349783 (Version 2)
Quarter: 2013Q3

REPORT INFORMATION
  Report Type: Report from Study
  Country: US (occurrence: US)
  Receive Date: 20130614
  Receipt Date: 20130717
  Transmission Date: 20140515
  Serious: Yes (Hospitalization)
  Sender: FDA-Public Use
  Company Number: US-US-EMD SERONO, INC.-7217282

PATIENT
  Sex: Female
  Weight: 71 kg

DRUGS (4)
  1. REBIF [Suspect]
     Indication: MULTIPLE SCLEROSIS
     Dates: start: 2010
  2. REBIF [Suspect]
     Route: 058
     Dates: start: 20130225, end: 201305
  3. REBIF [Suspect]
     Route: 058
     Dates: start: 20130709
  4. IBUPROFEN [Concomitant]
     Indication: INFLUENZA LIKE ILLNESS

REACTIONS (2)
  - Haemorrhagic ovarian cyst [Recovering/Resolving]
  - Fatigue [Not Recovered/Not Resolved]
